FAERS Safety Report 23824871 (Version 1)
Quarter: 2024Q2

REPORT INFORMATION
  Report Type: Spontaneous
  Country: US (occurrence: US)
  Receive Date: 20240507
  Receipt Date: 20240507
  Transmission Date: 20240716
  Serious: No
  Sender: FDA-Public Use
  Company Number: US-TEVA-VS-3185528

PATIENT
  Age: 70 Year
  Sex: Male
  Weight: 102.06 kg

DRUGS (1)
  1. QVAR REDIHALER [Suspect]
     Active Substance: BECLOMETHASONE DIPROPIONATE
     Indication: Nasopharyngitis
     Dosage: 2 PUFFS TWICE A DAY, STRENGTH: 40 MCG
     Route: 065

REACTIONS (3)
  - Product prescribing issue [Unknown]
  - Extra dose administered [Unknown]
  - Drug delivery system issue [Unknown]
